FAERS Safety Report 16242887 (Version 6)
Quarter: 2019Q2

REPORT INFORMATION
  Report Type: Report from Study
  Country: US (occurrence: US)
  Receive Date: 20190426
  Receipt Date: 20190604
  Transmission Date: 20190711
  Serious: Yes (Hospitalization, Other)
  Sender: FDA-Public Use
  Company Number: US-GILEAD-2019-0388849

PATIENT
  Age: 70 Year
  Sex: Female
  Weight: 39.91 kg

DRUGS (18)
  1. DIAZIDE [GLICLAZIDE] [Concomitant]
     Indication: PULMONARY HYPERTENSION
     Dosage: 37.5 / 25 MG
     Route: 048
  2. ZOLPIDEM [Concomitant]
     Active Substance: ZOLPIDEM\ZOLPIDEM TARTRATE
  3. DICYCLOMINE [DICYCLOVERINE] [Concomitant]
  4. SPIRONOLACTONE. [Concomitant]
     Active Substance: SPIRONOLACTONE
  5. COUMADIN [Concomitant]
     Active Substance: WARFARIN SODIUM
  6. DILTIAZEM. [Concomitant]
     Active Substance: DILTIAZEM
  7. METOPROLOL. [Concomitant]
     Active Substance: METOPROLOL
  8. AMBRISENTAN [Suspect]
     Active Substance: AMBRISENTAN
     Indication: PULMONARY HYPERTENSION
     Dosage: 10 MG
     Route: 048
     Dates: start: 20111025
  9. POTASSIUM [Concomitant]
     Active Substance: POTASSIUM
     Indication: HYPERTENSION
     Dosage: 20 MG
     Route: 048
  10. PREDNISONE. [Concomitant]
     Active Substance: PREDNISONE
     Indication: SCLERODERMA
     Dosage: 5 MG
     Route: 048
  11. WARFARIN [Concomitant]
     Active Substance: WARFARIN
     Dosage: 4 MG
     Route: 048
  12. SILDENAFIL. [Concomitant]
     Active Substance: SILDENAFIL
  13. ATENOLOL. [Concomitant]
     Active Substance: ATENOLOL
     Indication: HYPERTENSION
     Dosage: 100 MG
     Route: 048
  14. DEXILANT [Concomitant]
     Active Substance: DEXLANSOPRAZOLE
  15. TRIAMTERENE/HYDROCHLOROTHIAZIDE [Concomitant]
     Active Substance: HYDROCHLOROTHIAZIDE\TRIAMTERENE
  16. FUROSEMIDE. [Concomitant]
     Active Substance: FUROSEMIDE
  17. AMBRISENTAN [Suspect]
     Active Substance: AMBRISENTAN
     Indication: SCLERODERMA
  18. REVATIO [Concomitant]
     Active Substance: SILDENAFIL CITRATE
     Indication: PULMONARY HYPERTENSION
     Dosage: 20 MG
     Route: 048

REACTIONS (11)
  - Asthenia [Unknown]
  - Product use issue [Not Recovered/Not Resolved]
  - Hypotension [Unknown]
  - Myocardial infarction [Recovered/Resolved]
  - Troponin increased [Unknown]
  - Gait disturbance [Not Recovered/Not Resolved]
  - Intentional product use issue [Not Recovered/Not Resolved]
  - Myocardial infarction [Unknown]
  - Acute right ventricular failure [Unknown]
  - Atrial tachycardia [Unknown]
  - Intentional dose omission [Recovered/Resolved]

NARRATIVE: CASE EVENT DATE: 20190203
